FAERS Safety Report 9377170 (Version 3)
Quarter: 2014Q1

REPORT INFORMATION
  Report Type: Spontaneous
  Country: FR (occurrence: FR)
  Receive Date: 20130701
  Receipt Date: 20140108
  Transmission Date: 20141002
  Serious: Yes (Other)
  Sender: FDA-Public Use
  Company Number: FR-UCBSA-090321

PATIENT
  Age: 57 Year
  Sex: Female
  Weight: 70 kg

DRUGS (5)
  1. CIMZIA [Suspect]
     Indication: RHEUMATOID ARTHRITIS
     Dosage: 400MG
     Route: 058
     Dates: start: 201305
  2. METHOTREXATE [Concomitant]
     Indication: RHEUMATOID ARTHRITIS
     Dosage: 6 TABLETS WEEKLY
     Dates: start: 2000
  3. SPECIAFOLDINE [Concomitant]
     Indication: RHEUMATOID ARTHRITIS
     Dosage: 2 TABLETS WEEKLY
     Dates: start: 2000
  4. INEXIUM [Concomitant]
     Dosage: ON REQUEST
     Dates: start: 2000
  5. MOBIC [Concomitant]
     Dosage: ON REQUEST
     Dates: start: 2000

REACTIONS (1)
  - Erythema nodosum [Recovering/Resolving]
